FAERS Safety Report 9753239 (Version 3)
Quarter: 2015Q3

REPORT INFORMATION
  Report Type: Spontaneous
  Country: US (occurrence: US)
  Receive Date: 20131213
  Receipt Date: 20150805
  Transmission Date: 20151125
  Serious: No
  Sender: FDA-Public Use
  Company Number: US-GILEAD-2010-0027630

PATIENT
  Age: 69 Year
  Sex: Female
  Weight: 95.25 kg

DRUGS (13)
  1. ADVAIR HFA [Concomitant]
     Active Substance: FLUTICASONE PROPIONATE\SALMETEROL XINAFOATE
  2. MILK OF MAGNESIA [Concomitant]
     Active Substance: MAGNESIUM HYDROXIDE
  3. INDAPAMIDE. [Concomitant]
     Active Substance: INDAPAMIDE
  4. PEPCID AC [Concomitant]
     Active Substance: FAMOTIDINE
  5. LETAIRIS [Suspect]
     Active Substance: AMBRISENTAN
     Indication: PULMONARY ARTERIAL HYPERTENSION
     Route: 048
     Dates: start: 20090406
  6. ECOTRIN [Concomitant]
     Active Substance: ASPIRIN
  7. MUCINEX [Concomitant]
     Active Substance: GUAIFENESIN
  8. OXYGEN. [Concomitant]
     Active Substance: OXYGEN
  9. SPIRIVA [Concomitant]
     Active Substance: TIOTROPIUM BROMIDE MONOHYDRATE
  10. CENTRUM SLILVER [Concomitant]
  11. MAVIK [Concomitant]
     Active Substance: TRANDOLAPRIL
  12. ALBUTEROL SULFATE. [Concomitant]
     Active Substance: ALBUTEROL SULFATE
  13. MIRALAX [Concomitant]
     Active Substance: POLYETHYLENE GLYCOL 3350

REACTIONS (3)
  - Hypoxia [Unknown]
  - Unevaluable event [Unknown]
  - Ventilation perfusion mismatch [Unknown]
